FAERS Safety Report 7117339-1 (Version None)
Quarter: 2010Q4

REPORT INFORMATION
  Report Type: 
  Country: None (occurrence: None)
  Receive Date: 20101122
  Receipt Date: 20101116
  Transmission Date: 20110411
  Serious: Yes (Hospitalization)
  Sender: FDA-Public Use
  Company Number: DE-TEVA-255898GER

PATIENT
  Age: 50 Year
  Sex: Male
  Weight: 80 kg

DRUGS (3)
  1. CISPLATIN [Suspect]
     Indication: LUNG CANCER METASTATIC
     Dosage: 125 MG
     Route: 042
     Dates: start: 20100902
  2. PEMETREXED [Suspect]
     Indication: LUNG CANCER METASTATIC
     Dosage: 800 MG
     Route: 042
     Dates: start: 20100902
  3. GRANISETRON HYDROCHLORIDE [Concomitant]
     Indication: PROPHYLAXIS OF NAUSEA AND VOMITING
     Dosage: 3 MG
     Route: 042
     Dates: start: 20100902

REACTIONS (2)
  - STAPHYLOCOCCUS TEST POSITIVE [None]
  - TOXIC EPIDERMAL NECROLYSIS [None]
